FAERS Safety Report 6108999-2 (Version None)
Quarter: 2009Q1

REPORT INFORMATION
  Report Type: 
  Country: None (occurrence: None)
  Receive Date: 20090310
  Receipt Date: 20090225
  Transmission Date: 20090719
  Serious: Yes (Other)
  Sender: FDA-Public Use
  Company Number: FR-ELI_LILLY_AND_COMPANY-FR200903000185

PATIENT
  Age: 74 Year
  Sex: Female

DRUGS (6)
  1. FORTEO [Suspect]
     Indication: OSTEOPOROSIS
     Dosage: 20 UG, DAILY (1/D)
     Route: 058
     Dates: start: 20080208
  2. PREVISCAN [Concomitant]
     Indication: EMBOLISM
     Dosage: 1 D/F, DAILY (1/D)
  3. SYMBICORT [Concomitant]
     Indication: RESPIRATORY DISORDER
  4. VENTOLIN [Concomitant]
     Indication: RESPIRATORY DISORDER
  5. PROPOFAN [Concomitant]
     Indication: PAIN
     Dosage: 6 D/F, DAILY (1/D)
  6. FRAXIPARINE [Concomitant]

REACTIONS (4)
  - BACK PAIN [None]
  - BODY HEIGHT DECREASED [None]
  - GROWTH RETARDATION [None]
  - SPINAL FRACTURE [None]
